FAERS Safety Report 5463007-1 (Version None)
Quarter: 2007Q3

REPORT INFORMATION
  Report Type: 
  Country: None (occurrence: None)
  Receive Date: 20070920
  Receipt Date: 20070912
  Transmission Date: 20080115
  Serious: Yes (Hospitalization, Disabling, Other)
  Sender: FDA-Public Use
  Company Number: US-AMGEN-US242977

PATIENT
  Age: 81 Year
  Sex: Female

DRUGS (1)
  1. SENSIPAR [Suspect]
     Indication: DRUG USE FOR UNKNOWN INDICATION
     Route: 048

REACTIONS (3)
  - ABASIA [None]
  - CEREBROVASCULAR ACCIDENT [None]
  - HYPOTENSION [None]
